FAERS Safety Report 17520660 (Version 4)
Quarter: 2020Q2

REPORT INFORMATION
  Report Type: Spontaneous
  Country: US (occurrence: US)
  Receive Date: 20200310
  Receipt Date: 20200610
  Transmission Date: 20200713
  Serious: No
  Sender: FDA-Public Use
  Company Number: US-PFIZER INC-2020104288

PATIENT
  Age: 80 Year
  Sex: Female
  Weight: 85.26 kg

DRUGS (1)
  1. IBRANCE [Suspect]
     Active Substance: PALBOCICLIB
     Indication: LIPOSARCOMA
     Dosage: 125 MG, 1X/DAY
     Dates: start: 20200305

REACTIONS (4)
  - White blood cell count decreased [Unknown]
  - Appetite disorder [Unknown]
  - Back pain [Unknown]
  - Platelet count decreased [Unknown]
